FAERS Safety Report 5751771-3 (Version None)
Quarter: 2008Q2

REPORT INFORMATION
  Report Type: 
  Country: None (occurrence: None)
  Receive Date: 20080529
  Receipt Date: 20080519
  Transmission Date: 20081010
  Serious: Yes (Other)
  Sender: FDA-Public Use
  Company Number: US-JNJFOC-20080407451

PATIENT
  Sex: Female

DRUGS (1)
  1. TRAMADOL HCL [Suspect]
     Indication: DRUG USE FOR UNKNOWN INDICATION
     Dosage: 2 TABLETS, 3 TIMES A DAY
     Route: 048

REACTIONS (4)
  - FEELING ABNORMAL [None]
  - LACRIMATION INCREASED [None]
  - MOOD ALTERED [None]
  - PULMONARY OEDEMA [None]
